FAERS Safety Report 12471209 (Version 1)
Quarter: 2016Q2

REPORT INFORMATION
  Report Type: Spontaneous
  Country: RS (occurrence: RS)
  Receive Date: 20160616
  Receipt Date: 20160616
  Transmission Date: 20160815
  Serious: Yes (Hospitalization)
  Sender: FDA-Public Use
  Company Number: RS-SA-2016SA109130

PATIENT
  Age: 56 Year
  Sex: Female

DRUGS (1)
  1. CEREZYME [Suspect]
     Active Substance: IMIGLUCERASE
     Indication: GAUCHER^S DISEASE TYPE I
     Route: 041
     Dates: start: 20060206, end: 2011

REACTIONS (11)
  - Knee deformity [Unknown]
  - Nausea [Recovered/Resolved]
  - Fatigue [Unknown]
  - Mobility decreased [Unknown]
  - Arthralgia [Unknown]
  - Arthralgia [Unknown]
  - Joint swelling [Unknown]
  - Abdominal pain upper [Recovered/Resolved]
  - Asthenia [Unknown]
  - Body temperature increased [Unknown]
  - Adenocarcinoma gastric [Recovered/Resolved]

NARRATIVE: CASE EVENT DATE: 20080124
